FAERS Safety Report 5382409-5 (Version None)
Quarter: 2007Q3

REPORT INFORMATION
  Report Type: 
  Country: None (occurrence: None)
  Receive Date: 20070709
  Receipt Date: 20070629
  Transmission Date: 20080115
  Serious: Yes (Death, Hospitalization)
  Sender: FDA-Public Use
  Company Number: JP-MERCK-0706USA00381

PATIENT
  Age: 83 Year
  Sex: Female

DRUGS (2)
  1. PRIMAXIN [Suspect]
     Route: 065
     Dates: start: 20040101
  2. URSODIOL [Concomitant]
     Route: 065

REACTIONS (4)
  - BILIARY CIRRHOSIS PRIMARY [None]
  - PERIANAL ABSCESS [None]
  - PNEUMONIA [None]
  - WHITE BLOOD CELL DISORDER [None]
